FAERS Safety Report 6173561-2 (Version None)
Quarter: 2009Q2

REPORT INFORMATION
  Report Type: 
  Country: None (occurrence: None)
  Receive Date: 20090430
  Receipt Date: 20090428
  Transmission Date: 20091009
  Serious: Yes (Hospitalization)
  Sender: FDA-Public Use
  Company Number: B0572162A

PATIENT
  Sex: Female

DRUGS (9)
  1. AUGMENTIN '125' [Suspect]
     Indication: DRUG USE FOR UNKNOWN INDICATION
     Dosage: 1G SINGLE DOSE
     Route: 048
     Dates: start: 20090104, end: 20090104
  2. ZECLAR [Suspect]
     Indication: DRUG USE FOR UNKNOWN INDICATION
     Dosage: 500MG PER DAY
     Route: 048
     Dates: start: 20090105, end: 20090106
  3. KARDEGIC [Concomitant]
     Dosage: 75MG PER DAY
     Route: 048
  4. LASILIX FAIBLE [Concomitant]
     Dosage: 20MG PER DAY
     Route: 048
  5. LORAZEPAM [Concomitant]
     Dosage: .5MG PER DAY
     Route: 048
  6. TIAPRIDAL [Concomitant]
     Dosage: 50MG TWICE PER DAY
     Route: 048
  7. LANTUS [Concomitant]
     Dosage: 6IU PER DAY
     Route: 058
  8. CALCIPARINE [Concomitant]
     Dosage: .2ML TWICE PER DAY
     Route: 058
  9. NOVONORM [Concomitant]
     Dosage: .5MG THREE TIMES PER DAY
     Route: 048
     Dates: start: 20090102

REACTIONS (2)
  - ERYTHEMA [None]
  - RENAL FAILURE ACUTE [None]
